FAERS Safety Report 24022902 (Version 1)
Quarter: 2024Q2

REPORT INFORMATION
  Report Type: Spontaneous
  Country: IN (occurrence: IN)
  Receive Date: 20240627
  Receipt Date: 20240627
  Transmission Date: 20240716
  Serious: No
  Sender: FDA-Public Use
  Company Number: IN-ROCHE-3553073

PATIENT
  Age: 64 Year
  Sex: Female

DRUGS (2)
  1. VABYSMO [Suspect]
     Active Substance: FARICIMAB\FARICIMAB-SVOA
     Indication: Polypoidal choroidal vasculopathy
     Route: 050
     Dates: start: 20240418
  2. GATIFLOXACIN [Concomitant]
     Active Substance: GATIFLOXACIN
     Dosage: 1 DROP DAILY 6 TIMES FOR A WEEK
     Route: 047
     Dates: start: 20240418

REACTIONS (2)
  - Off label use [Unknown]
  - No adverse event [Unknown]

NARRATIVE: CASE EVENT DATE: 20240418
